FAERS Safety Report 8922496 (Version 2)
Quarter: 2012Q4

REPORT INFORMATION
  Report Type: 
  Country: US (occurrence: US)
  Receive Date: 20121123
  Receipt Date: 20121213
  Transmission Date: 20130627
  Serious: No
  Sender: FDA-Public Use
  Company Number: US-PFIZER INC-2012289521

PATIENT
  Age: 71 Year
  Sex: Female

DRUGS (1)
  1. INLYTA [Suspect]
     Indication: KIDNEY CANCER
     Dosage: 5 mg, one tablet twice daily
     Dates: start: 20120612

REACTIONS (1)
  - Blister [Unknown]
